FAERS Safety Report 14452731 (Version 2)
Quarter: 2019Q1

REPORT INFORMATION
  Report Type: Other
  Country: US (occurrence: US)
  Receive Date: 20180129
  Receipt Date: 20190102
  Transmission Date: 20190417
  Serious: Yes (Hospitalization, Other)
  Sender: FDA-Public Use
  Company Number: US-ACTELION-A-CH2018-166116

PATIENT
  Age: 14 Month
  Sex: Male

DRUGS (4)
  1. TREPROSTINIL. [Concomitant]
     Active Substance: TREPROSTINIL
     Dosage: 80 NG/KG, PER MIN
     Route: 042
  2. BOSENTAN. [Suspect]
     Active Substance: BOSENTAN
     Indication: PULMONARY HYPERTENSION
     Route: 048
  3. SILDENAFIL. [Concomitant]
     Active Substance: SILDENAFIL
  4. NITRIC OXIDE. [Concomitant]
     Active Substance: NITRIC OXIDE
     Route: 055

REACTIONS (5)
  - Extracorporeal membrane oxygenation [Unknown]
  - Rhinovirus infection [Unknown]
  - Catheterisation cardiac [Unknown]
  - Concomitant disease progression [Unknown]
  - Right ventricular failure [Unknown]
